FAERS Safety Report 6686780-3 (Version None)
Quarter: 2010Q2

REPORT INFORMATION
  Report Type: 
  Country: None (occurrence: None)
  Receive Date: 20100415
  Receipt Date: 20100402
  Transmission Date: 20101027
  Serious: Yes (Other)
  Sender: FDA-Public Use
  Company Number: 7000055

PATIENT
  Age: 34 Year
  Sex: Female

DRUGS (4)
  1. REBIF [Suspect]
     Indication: MULTIPLE SCLEROSIS
     Dosage: 44 MCG, 3 IN 1 WK, SUBCUTANEOUS
     Route: 058
     Dates: start: 20100201
  2. EXCEDRIN (MIGRAINE) [Concomitant]
  3. TYLENOL (PARACETAMOL) [Concomitant]
  4. GABAPENTIN [Concomitant]

REACTIONS (9)
  - APHASIA [None]
  - ASTHENIA [None]
  - BALANCE DISORDER [None]
  - BONE PAIN [None]
  - DIZZINESS [None]
  - DYSARTHRIA [None]
  - HEADACHE [None]
  - INJECTION SITE DRYNESS [None]
  - INJECTION SITE PAIN [None]
